FAERS Safety Report 4845992-1 (Version None)
Quarter: 2005Q4

REPORT INFORMATION
  Report Type: 
  Country: None (occurrence: None)
  Receive Date: 20051206
  Receipt Date: 20040709
  Transmission Date: 20060501
  Serious: Yes (Disabling, Other)
  Sender: FDA-Public Use
  Company Number: 200412293JP

PATIENT
  Age: 48 Year
  Sex: Female
  Weight: 46 kg

DRUGS (13)
  1. ARAVA [Suspect]
     Indication: RHEUMATOID ARTHRITIS
     Route: 048
     Dates: start: 20040402, end: 20040403
  2. ARAVA [Suspect]
     Route: 048
     Dates: start: 20040404, end: 20040707
  3. RHEUMATREX [Concomitant]
     Indication: RHEUMATOID ARTHRITIS
     Dosage: DOSE: 6MG/WEEK
     Route: 048
     Dates: start: 20031001, end: 20040401
  4. IMURAN [Concomitant]
     Indication: RHEUMATOID ARTHRITIS
     Route: 048
     Dates: start: 20031001, end: 20040401
  5. VOLTAREN [Concomitant]
     Indication: RHEUMATOID ARTHRITIS
     Route: 048
     Dates: start: 20031001, end: 20040511
  6. SELBEX [Concomitant]
     Indication: GASTRITIS
     Route: 048
     Dates: start: 20031001
  7. SELBEX [Concomitant]
     Indication: PROPHYLAXIS
     Route: 048
     Dates: start: 20031001
  8. ALTAT [Concomitant]
     Indication: GASTRITIS
     Route: 048
     Dates: start: 20031001, end: 20040525
  9. ALTAT [Concomitant]
     Indication: PROPHYLAXIS
     Route: 048
     Dates: start: 20031001, end: 20040525
  10. OSTELUC [Concomitant]
     Indication: RHEUMATOID ARTHRITIS
     Route: 048
     Dates: start: 20040512, end: 20040622
  11. QUESTRAN [Concomitant]
     Route: 048
     Dates: start: 20040707
  12. TAKEPRON [Concomitant]
     Indication: GASTRIC ULCER
     Route: 048
     Dates: start: 20040526, end: 20050622
  13. TAKEPRON [Concomitant]
     Indication: PROPHYLAXIS
     Route: 048
     Dates: start: 20040526, end: 20050622

REACTIONS (10)
  - ABDOMINAL PAIN UPPER [None]
  - ATYPICAL MYCOBACTERIAL INFECTION [None]
  - BLOOD CHOLESTEROL INCREASED [None]
  - BLOOD TRIGLYCERIDES INCREASED [None]
  - DIALYSIS [None]
  - GLOMERULOSCLEROSIS [None]
  - HAEMATURIA [None]
  - NEPHROTIC SYNDROME [None]
  - PROTEINURIA [None]
  - PSEUDOMONAS INFECTION [None]
